FAERS Safety Report 21567855 (Version 2)
Quarter: 2022Q4

REPORT INFORMATION
  Report Type: Spontaneous
  Country: CA (occurrence: CA)
  Receive Date: 20221108
  Receipt Date: 20221117
  Transmission Date: 20230112
  Serious: Yes (Other)
  Sender: FDA-Public Use
  Company Number: CA-PFIZER INC-202200546847

PATIENT
  Age: 45 Year
  Sex: Male

DRUGS (2)
  1. ABRILADA [Suspect]
     Active Substance: ADALIMUMAB-AFZB
     Indication: Colitis ulcerative
     Dosage: 40 MG, EVERY 10 DAYS
     Route: 058
     Dates: start: 20220824, end: 2022
  2. ABRILADA [Suspect]
     Active Substance: ADALIMUMAB-AFZB
     Dosage: 40 MG, WEEKLY, PEN/SYRINGE UNKNOWN
     Route: 058
     Dates: start: 2022, end: 2022

REACTIONS (11)
  - Sinusitis [Not Recovered/Not Resolved]
  - Colitis ulcerative [Unknown]
  - Spondylitis [Unknown]
  - Condition aggravated [Unknown]
  - Malaise [Not Recovered/Not Resolved]
  - Nasopharyngitis [Recovered/Resolved]
  - Pyrexia [Recovered/Resolved]
  - Condition aggravated [Unknown]
  - Stress [Unknown]
  - Viral infection [Unknown]
  - Off label use [Unknown]

NARRATIVE: CASE EVENT DATE: 20220101
